FAERS Safety Report 6111598-X (Version None)
Quarter: 2009Q1

REPORT INFORMATION
  Report Type: 
  Country: None (occurrence: None)
  Receive Date: 20090311
  Receipt Date: 20090304
  Transmission Date: 20090719
  Serious: Yes (Hospitalization)
  Sender: FDA-Public Use
  Company Number: JP-MERCK-0902USA03011

PATIENT
  Age: 62 Year
  Sex: Male

DRUGS (9)
  1. PEPCID RPD [Suspect]
     Route: 048
     Dates: start: 20081219, end: 20090209
  2. CAMLEED [Concomitant]
     Route: 065
     Dates: start: 20081219
  3. LIVACT [Concomitant]
     Route: 065
     Dates: start: 20081219
  4. BIOFERMIN R [Concomitant]
     Route: 065
     Dates: start: 20081219
  5. KANAMYCIN SULFATE [Concomitant]
     Route: 065
     Dates: start: 20081219
  6. MAGMITT [Concomitant]
     Route: 065
     Dates: start: 20081219
  7. LACTULOSE [Concomitant]
     Route: 065
     Dates: start: 20081219
  8. GLAKAY [Concomitant]
     Route: 065
     Dates: start: 20081220
  9. FLAVITAN [Concomitant]
     Route: 065
     Dates: start: 20081224

REACTIONS (1)
  - RHABDOMYOLYSIS [None]
